FAERS Safety Report 24264585 (Version 1)
Quarter: 2024Q3

REPORT INFORMATION
  Report Type: Spontaneous
  Country: JP (occurrence: JP)
  Receive Date: 20240829
  Receipt Date: 20240829
  Transmission Date: 20241016
  Serious: Yes (Other)
  Sender: ASTELLAS
  Company Number: JP-ASTELLAS-2024-AER-000045

PATIENT
  Sex: Female

DRUGS (3)
  1. PROGRAF [Suspect]
     Active Substance: TACROLIMUS
     Indication: Collagen disorder
     Dosage: BEFORE BREAKFAST/DINNER
     Route: 048
     Dates: start: 202407
  2. PROGRAF [Suspect]
     Active Substance: TACROLIMUS
     Indication: Polymyositis
     Dosage: BEFORE BREAKFAST/DINNER
     Route: 048
  3. PROGRAF [Suspect]
     Active Substance: TACROLIMUS
     Indication: Rheumatoid arthritis
     Dosage: BEFORE BREAKFAST/DINNER?THE DOSE WAS INCREASED LITTLE BY LITTLE
     Route: 048
     Dates: start: 20240816

REACTIONS (7)
  - Rheumatoid arthritis [Unknown]
  - Interstitial lung disease [Unknown]
  - Drug level decreased [Unknown]
  - Malaise [Unknown]
  - Physical deconditioning [Unknown]
  - C-reactive protein increased [Unknown]
  - Product use issue [Unknown]

NARRATIVE: CASE EVENT DATE: 20240701
